FAERS Safety Report 17198496 (Version 1)
Quarter: 2019Q4

REPORT INFORMATION
  Report Type: Spontaneous
  Country: US (occurrence: US)
  Receive Date: 20191225
  Receipt Date: 20191225
  Transmission Date: 20200122
  Serious: Yes (Other)
  Sender: FDA-Public Use
  Company Number: US-TEVA-2019-US-1158876

PATIENT
  Sex: Female

DRUGS (2)
  1. CLONAZEPAM TEVA [Concomitant]
     Active Substance: CLONAZEPAM
     Indication: ATTENTION DEFICIT/HYPERACTIVITY DISORDER
     Dosage: TWO TO THREE TIMES PER DAY
     Route: 065
     Dates: start: 2004
  2. DEXTROAMPHET SACCHARAT, AMPHET ASPARTATE, DEXTROAMPHET SULFATE AND AMPHET SULFAT [Suspect]
     Active Substance: AMPHETAMINE ASPARTATE\AMPHETAMINE SULFATE\DEXTROAMPHETAMINE SACCHARATE\DEXTROAMPHETAMINE SULFATE
     Route: 065
     Dates: end: 201911

REACTIONS (8)
  - Decreased appetite [Unknown]
  - Tunnel vision [Unknown]
  - Irritable bowel syndrome [Unknown]
  - Stress at work [Unknown]
  - Insomnia [Unknown]
  - Depression [Unknown]
  - Diplopia [Unknown]
  - Irritability [Unknown]
